FAERS Safety Report 13085173 (Version 2)
Quarter: 2017Q1

REPORT INFORMATION
  Report Type: Spontaneous
  Country: US (occurrence: US)
  Receive Date: 20170104
  Receipt Date: 20170109
  Transmission Date: 20170428
  Serious: Yes (Hospitalization, Other)
  Sender: FDA-Public Use
  Company Number: US-PFIZER INC-2016604374

PATIENT
  Age: 69 Year
  Sex: Female
  Weight: 51.26 kg

DRUGS (5)
  1. LYRICA [Suspect]
     Active Substance: PREGABALIN
     Indication: FIBROMYALGIA
     Dosage: UNKNOWN DOSE, THREE TIMES A DAY
     Dates: start: 201609, end: 201609
  2. KLONOPIN [Concomitant]
     Active Substance: CLONAZEPAM
     Indication: ANXIETY
     Dosage: 1 MG, 1X/DAY
     Dates: end: 20161104
  3. CYMBALTA [Concomitant]
     Active Substance: DULOXETINE HYDROCHLORIDE
     Indication: DEPRESSION
     Dosage: 60 MG, 1X/DAY
  4. KLONOPIN [Concomitant]
     Active Substance: CLONAZEPAM
     Dosage: 1 MG, 3X/DAY
     Dates: start: 20161104
  5. AMLODIPINE [Concomitant]
     Active Substance: AMLODIPINE BESYLATE
     Indication: HYPERTENSION
     Dosage: 5MG, ONE DAILY

REACTIONS (17)
  - Rhabdomyolysis [Not Recovered/Not Resolved]
  - Memory impairment [Not Recovered/Not Resolved]
  - Personality change [Recovered/Resolved]
  - Chronic kidney disease [Not Recovered/Not Resolved]
  - Fall [Recovering/Resolving]
  - Pain in extremity [Not Recovered/Not Resolved]
  - Ligament sprain [Unknown]
  - Head injury [Recovered/Resolved]
  - Dysarthria [Recovered/Resolved]
  - Bladder spasm [Recovering/Resolving]
  - Vomiting [Unknown]
  - Foot fracture [Unknown]
  - Feeling abnormal [Unknown]
  - Muscle injury [Unknown]
  - Sleep disorder [Unknown]
  - Urinary incontinence [Recovering/Resolving]
  - Joint instability [Unknown]

NARRATIVE: CASE EVENT DATE: 2016
